FAERS Safety Report 6641024-3 (Version None)
Quarter: 2010Q1

REPORT INFORMATION
  Report Type: 
  Country: None (occurrence: None)
  Receive Date: 20100318
  Receipt Date: 20100304
  Transmission Date: 20100710
  Serious: Yes (Hospitalization)
  Sender: FDA-Public Use
  Company Number: B0640622A

PATIENT
  Sex: Female
  Weight: 150 kg

DRUGS (2)
  1. KEPPRA XR [Suspect]
     Route: 048
     Dates: start: 20080820
  2. LAMOTRIGINE [Suspect]
     Indication: EPILEPSY
     Route: 048
     Dates: start: 20090805

REACTIONS (4)
  - CEREBELLAR ATAXIA [None]
  - CONVULSION [None]
  - HEADACHE [None]
  - THERAPEUTIC AGENT TOXICITY [None]
